FAERS Safety Report 14447958 (Version 2)
Quarter: 2018Q2

REPORT INFORMATION
  Report Type: Spontaneous
  Country: US (occurrence: US)
  Receive Date: 20180126
  Receipt Date: 20180430
  Transmission Date: 20180711
  Serious: No
  Sender: FDA-Public Use
  Company Number: US-BRACCO DIAGNOSTICS, INC.-2017US04549

PATIENT
  Sex: Female

DRUGS (1)
  1. LIQUID POLIBAR PLUS [Suspect]
     Active Substance: BARIUM SULFATE
     Indication: OESOPHAGRAM
     Dosage: UNK UNK, SINGLE
     Route: 048
     Dates: start: 20171006, end: 20171006

REACTIONS (3)
  - Drug effect decreased [Unknown]
  - No adverse event [Unknown]
  - Product physical consistency issue [Unknown]

NARRATIVE: CASE EVENT DATE: 20171006
